FAERS Safety Report 10236241 (Version 1)
Quarter: 2014Q1

REPORT INFORMATION
  Report Type: Spontaneous
  Country: US (occurrence: None)
  Receive Date: 20140306
  Receipt Date: 20140306
  Transmission Date: 20141002
  Serious: Yes (Other)
  Sender: FDA-Public Use
  Company Number: 163-21880-13030234

PATIENT
  Age: 57 Year
  Sex: Female

DRUGS (10)
  1. REVLIMID (LENALIDOMIDE) (25 MILLIGRAM, CAPSULES) [Suspect]
     Indication: PLASMA CELL MYELOMA
     Route: 048
     Dates: start: 200811
  2. ALLOPURINOL (ALLOPURINOL) (UNKNOWN) [Concomitant]
  3. ASPIRIN (ACETYLSALICYLIC ACID) (TABLETS) [Concomitant]
  4. DEXAMETHASONE (DEXAMETHASONE) (UNKNOWN) [Concomitant]
  5. FLONASE (FLUTICASONE PROPIONATE) (SPRAY) (NOT INHALITION) [Concomitant]
  6. FUROSEMIDE (FUROSEMIDE) (UNKNOWN) [Concomitant]
  7. KLOR-CON M15 (POTASSIUM CHLORIDE) (UNKNOWN) [Concomitant]
  8. LOSARTAN POTASSIUM (UNKNOWN) [Concomitant]
  9. METOPROLOL TARTRATE (METOPROLOL TARTRATE) (UNKNOWN) [Concomitant]
  10. PRILOSEC (OMEPRAZOLE) (CAPSULES) [Concomitant]

REACTIONS (2)
  - Middle ear effusion [None]
  - Wheezing [None]
